FAERS Safety Report 9147824 (Version 1)
Quarter: 2013Q1

REPORT INFORMATION
  Report Type: Spontaneous
  Country: US (occurrence: US)
  Receive Date: 20130307
  Receipt Date: 20130307
  Transmission Date: 20140127
  Serious: Yes (Disabling, Other)
  Sender: FDA-Public Use
  Company Number: CHPA2013US004038

PATIENT
  Sex: Male

DRUGS (2)
  1. MAALOX ADV MAXIMUM STRENGTH ANTACID/ANTIGAS [Suspect]
     Indication: FLATULENCE
     Dosage: UNK, UNK
     Route: 048
     Dates: start: 1973
  2. MAALOX ANTACID [Suspect]
     Dosage: UNK, UNK
     Route: 065

REACTIONS (4)
  - Disability [Not Recovered/Not Resolved]
  - Walking aid user [Not Recovered/Not Resolved]
  - Ankle fracture [Not Recovered/Not Resolved]
  - Accident [Not Recovered/Not Resolved]
